FAERS Safety Report 8952921 (Version 3)
Quarter: 2012Q4

REPORT INFORMATION
  Report Type: Report from Study
  Country: GB (occurrence: GB)
  Receive Date: 20121203
  Receipt Date: 20121221
  Transmission Date: 20130627
  Serious: Yes (Life-Threatening, Other)
  Sender: FDA-Public Use
  Company Number: GB-AMGEN-GBRCT2012076889

PATIENT
  Age: 67 Year
  Sex: Female

DRUGS (13)
  1. ETANERCEPT [Suspect]
     Indication: RHEUMATOID ARTHRITIS
     Dosage: 25 mg, 2x/week
     Dates: start: 20030728, end: 20120412
  2. ALENDRONIC ACID [Concomitant]
     Dosage: 70 mg, weekly
  3. ESOMEPRAZOLE [Concomitant]
     Dosage: 40 mg, 2x/day
  4. LEVOTHYROXINE [Concomitant]
     Dosage: UNK
  5. DOMPERIDONE [Concomitant]
     Dosage: UNK
  6. CO-CODAMOL [Concomitant]
     Dosage: UNK
  7. TRAMADOL [Concomitant]
     Dosage: UNK
  8. FENTANYL [Concomitant]
     Dosage: UNK
  9. GABAPENTIN [Concomitant]
     Dosage: UNK
  10. MELOXICAM [Concomitant]
     Dosage: UNK
  11. PREDNISOLONE [Concomitant]
     Dosage: 7.5mgs/5mgs on alternate days
  12. RAMIPRIL [Concomitant]
     Dosage: UNK
  13. FUROSEMIDE [Concomitant]
     Dosage: 40/20mgs daily

REACTIONS (1)
  - Lung neoplasm malignant [Unknown]
